FAERS Safety Report 8530088 (Version 3)
Quarter: 2012Q4

REPORT INFORMATION
  Report Type: Report from Study
  Country: JP (occurrence: JP)
  Receive Date: 20120425
  Receipt Date: 20120925
  Transmission Date: 20130627
  Serious: Yes (Life-Threatening, Hospitalization)
  Sender: FDA-Public Use
  Company Number: JP-VIIV HEALTHCARE LIMITED-B0797130A

PATIENT
  Age: 69 Year
  Sex: Female

DRUGS (12)
  1. LEXIVA [Suspect]
     Indication: HIV INFECTION
     Dosage: 1400MG Per day
     Route: 048
     Dates: start: 20111020
  2. ZIAGEN [Suspect]
     Indication: HIV INFECTION
     Dosage: 300MG Twice per day
     Route: 048
     Dates: start: 20010410
  3. EPIVIR [Suspect]
     Indication: HIV INFECTION
     Dosage: 150MG Twice per day
     Route: 048
     Dates: start: 20051031
  4. NORVIR [Suspect]
     Indication: HIV INFECTION
     Route: 048
     Dates: start: 20080402, end: 20110615
  5. NORVIR [Suspect]
     Indication: HIV INFECTION
     Route: 048
     Dates: start: 20110616
  6. REYATAZ [Suspect]
     Indication: HIV INFECTION
     Route: 048
     Dates: start: 20080115, end: 20080401
  7. REYATAZ [Suspect]
     Indication: HIV INFECTION
     Route: 048
     Dates: start: 20080402, end: 20111019
  8. STOCRIN [Suspect]
     Indication: HIV INFECTION
     Route: 048
     Dates: start: 20010410, end: 20080115
  9. AMLODIN [Concomitant]
     Indication: HYPERTENSION
     Dosage: 5MG Per day
     Route: 048
  10. BUFFERIN [Concomitant]
     Indication: PROPHYLAXIS
     Dosage: 1IUAX Per day
     Route: 048
  11. TOLEDOMIN [Concomitant]
     Indication: DEPRESSION
     Dosage: 15MG Four times per day
     Route: 048
     Dates: end: 20080116
  12. TAKEPRON [Concomitant]
     Indication: PROPHYLAXIS AGAINST GASTROINTESTINAL ULCER
     Dosage: 15MG Per day
     Route: 048
     Dates: start: 20111020

REACTIONS (2)
  - Angina pectoris [Recovering/Resolving]
  - Hyperbilirubinaemia [Recovered/Resolved]
